FAERS Safety Report 18348589 (Version 1)
Quarter: 2020Q4

REPORT INFORMATION
  Report Type: Spontaneous
  Country: US (occurrence: US)
  Receive Date: 20201005
  Receipt Date: 20201005
  Transmission Date: 20210114
  Serious: No
  Sender: FDA-Public Use
  Company Number: None

PATIENT
  Age: 74 Year
  Sex: Female
  Weight: 88.2 kg

DRUGS (13)
  1. NEURONTIN [Concomitant]
     Active Substance: GABAPENTIN
  2. PROTON IX [Concomitant]
  3. LIPITOR [Concomitant]
     Active Substance: ATORVASTATIN CALCIUM
  4. DEFINITY [Suspect]
     Active Substance: PERFLUTREN
  5. IMDUR [Concomitant]
     Active Substance: ISOSORBIDE MONONITRATE
  6. TOPROL XL [Concomitant]
     Active Substance: METOPROLOL SUCCINATE
  7. DEMADEX [Concomitant]
     Active Substance: TORSEMIDE
  8. CACOS [Concomitant]
  9. HYDRALAZINE [Concomitant]
     Active Substance: HYDRALAZINE HYDROCHLORIDE
  10. ASA [Concomitant]
     Active Substance: ASPIRIN
  11. COLACE [Concomitant]
     Active Substance: DOCUSATE SODIUM
  12. TRAZODONE [Concomitant]
     Active Substance: TRAZODONE HYDROCHLORIDE
  13. PRILOSEC [Concomitant]
     Active Substance: OMEPRAZOLE MAGNESIUM

REACTIONS (1)
  - Back pain [None]

NARRATIVE: CASE EVENT DATE: 20201005
